FAERS Safety Report 7025292-4 (Version None)
Quarter: 2010Q4

REPORT INFORMATION
  Report Type: 
  Country: None (occurrence: None)
  Receive Date: 20101001
  Receipt Date: 20100927
  Transmission Date: 20110411
  Serious: Yes (Death)
  Sender: FDA-Public Use
  Company Number: RO-ABBOTT-10P-135-0673826-00

PATIENT
  Age: 37 Year
  Sex: Male
  Weight: 120 kg

DRUGS (3)
  1. HUMIRA [Suspect]
     Indication: PSORIASIS
     Route: 058
     Dates: start: 20100401, end: 20100801
  2. HUMIRA [Suspect]
     Indication: PSORIATIC ARTHROPATHY
  3. MTX [Concomitant]
     Indication: PSORIATIC ARTHROPATHY
     Route: 030
     Dates: start: 20100701, end: 20100801

REACTIONS (1)
  - STEVENS-JOHNSON SYNDROME [None]
